FAERS Safety Report 14842468 (Version 9)
Quarter: 2020Q1

REPORT INFORMATION
  Report Type: Report from Study
  Country: PL (occurrence: PL)
  Receive Date: 20180503
  Receipt Date: 20200228
  Transmission Date: 20200409
  Serious: Yes (Death, Hospitalization)
  Sender: FDA-Public Use
  Company Number: PL-CELGENEUS-POL-20180407004

PATIENT
  Age: 53 Year
  Sex: Female
  Weight: 48 kg

DRUGS (35)
  1. ABRAXANE [Suspect]
     Active Substance: PACLITAXEL
     Dosage: 100 MICROGRAM/SQ. METER
     Route: 042
     Dates: start: 20180404, end: 20180404
  2. CALCIUM [Concomitant]
     Active Substance: CALCIUM
     Indication: PROPHYLAXIS
     Dosage: 1000 MILLIGRAM
     Route: 048
     Dates: start: 20180321
  3. METOCLOPRAMIDE. [Concomitant]
     Active Substance: METOCLOPRAMIDE
     Indication: PROPHYLAXIS
     Dosage: 1 DOSAGE FORMS
     Route: 042
     Dates: start: 20180409, end: 20180411
  4. OXYCONTIN [Concomitant]
     Active Substance: OXYCODONE HYDROCHLORIDE
     Indication: BACK PAIN
  5. PALEXIA [Concomitant]
     Active Substance: TAPENTADOL HYDROCHLORIDE
     Indication: PELVIC PAIN
     Dosage: 200 MILLIGRAM
     Route: 048
     Dates: start: 20180321, end: 20180409
  6. PALEXIA [Concomitant]
     Active Substance: TAPENTADOL HYDROCHLORIDE
     Indication: SPINAL PAIN
  7. CLEXANE [Concomitant]
     Active Substance: ENOXAPARIN SODIUM
     Indication: PROPHYLAXIS
     Dosage: 40 MILLIGRAM
     Route: 003
     Dates: start: 20180409, end: 20180413
  8. ACETAMINOPHEN. [Concomitant]
     Active Substance: ACETAMINOPHEN
     Indication: PYREXIA
     Dosage: 1 GRAM
     Route: 042
     Dates: start: 20180409, end: 20180411
  9. GRANUFLEX [Concomitant]
     Indication: DECUBITUS ULCER
     Dosage: 1 DOSAGE FORMS
     Route: 003
     Dates: start: 20180412
  10. NASEN [Concomitant]
     Indication: ANXIETY
     Dosage: 1 DOSAGE FORMS
     Route: 048
     Dates: start: 20180412, end: 20180413
  11. DEXTROSE. [Concomitant]
     Active Substance: DEXTROSE
     Indication: BACK PAIN
  12. CALCIUM CHLORIDE. [Concomitant]
     Active Substance: CALCIUM CHLORIDE
     Indication: FLUID REPLACEMENT
     Dosage: 1000 MILLILITER
     Route: 042
     Dates: start: 20180411, end: 20180413
  13. FLUCOFAST [Concomitant]
     Dosage: 50 TABLET
     Route: 048
     Dates: start: 20180409, end: 20180412
  14. NIMESIL [Concomitant]
     Active Substance: NIMESULIDE
     Indication: PELVIC PAIN
  15. TRAMAL [Concomitant]
     Active Substance: TRAMADOL
     Indication: PELVIC PAIN
     Dosage: 200 MILLIGRAM
     Route: 042
     Dates: start: 20180409, end: 20180412
  16. TRAMAL [Concomitant]
     Active Substance: TRAMADOL
     Indication: BACK PAIN
  17. ZDROVIT LACIUM [Concomitant]
     Indication: PROPHYLAXIS
     Dosage: 3 DOSAGE FORMS
     Route: 048
     Dates: start: 20180412, end: 20180413
  18. NUTRIDRINK [Concomitant]
     Active Substance: CARBOHYDRATES\FATTY ACIDS\MINERALS\PROTEIN\VITAMINS
     Indication: WEIGHT DECREASED
     Dosage: 1 BAG
     Route: 048
     Dates: start: 20180404
  19. GRANUFLEX [Concomitant]
     Indication: BACK PAIN
  20. CALCIUM CHLORIDE. [Concomitant]
     Active Substance: CALCIUM CHLORIDE
     Indication: BACK PAIN
  21. BIOTUM [Concomitant]
     Indication: PROPHYLAXIS
     Dosage: 1 GRAM
     Route: 042
     Dates: start: 20180409, end: 20180412
  22. SODIUM CHLORIDE. [Concomitant]
     Active Substance: SODIUM CHLORIDE
     Indication: BACK PAIN
  23. MK-3475 [Suspect]
     Active Substance: PEMBROLIZUMAB
     Indication: TRIPLE NEGATIVE BREAST CANCER
     Dosage: 200 MILLIGRAM
     Route: 042
     Dates: start: 20180321, end: 20180321
  24. MELOXICAM. [Concomitant]
     Active Substance: MELOXICAM
     Indication: ARTHRITIS REACTIVE
     Route: 048
     Dates: start: 201801
  25. ZDROVIT LACIUM [Concomitant]
     Indication: BACK PAIN
  26. OXYCONTIN [Concomitant]
     Active Substance: OXYCODONE HYDROCHLORIDE
     Indication: PAIN
     Dosage: 80 MILLIGRAM
     Route: 048
     Dates: start: 20180412, end: 20180413
  27. DEXTROSE. [Concomitant]
     Active Substance: DEXTROSE
     Indication: FLUID REPLACEMENT
     Dosage: 500 MILLILITER
     Route: 042
     Dates: start: 20180411, end: 20180412
  28. ABRAXANE [Suspect]
     Active Substance: PACLITAXEL
     Indication: TRIPLE NEGATIVE BREAST CANCER
     Dosage: 100 MILLIGRAM/SQ. METER
     Route: 042
     Dates: start: 20180321, end: 20180328
  29. ZOLEDRONIC ACID [Concomitant]
     Active Substance: ZOLEDRONIC ACID
     Indication: PROPHYLAXIS
     Route: 042
     Dates: start: 20180321
  30. NASEN [Concomitant]
     Indication: BACK PAIN
  31. SODIUM CHLORIDE. [Concomitant]
     Active Substance: SODIUM CHLORIDE
     Indication: FLUID REPLACEMENT
     Dosage: 1500 MILLILITER
     Route: 045
     Dates: start: 20180409, end: 20180410
  32. BIODACYNA [Concomitant]
     Active Substance: AMIKACIN SULFATE
     Indication: PROPHYLAXIS
     Dosage: 1 GRAM
     Route: 042
     Dates: start: 20180409, end: 20180409
  33. NIMESIL [Concomitant]
     Active Substance: NIMESULIDE
     Indication: SPINAL PAIN
     Dosage: 20 MILLIGRAM
     Route: 048
     Dates: start: 20180321, end: 20180409
  34. METRONIDAZOLE. [Concomitant]
     Active Substance: METRONIDAZOLE
     Indication: PROPHYLAXIS
     Dosage: 1500 MILLIGRAM
     Route: 048
     Dates: start: 20180412, end: 20180412
  35. FLUCOFAST [Concomitant]
     Indication: PROPHYLAXIS
     Dosage: 200 MILLIGRAM
     Route: 042
     Dates: start: 20180413

REACTIONS (1)
  - Pneumonia [Fatal]

NARRATIVE: CASE EVENT DATE: 20180413
